FAERS Safety Report 4913579-8 (Version None)
Quarter: 2006Q1

REPORT INFORMATION
  Report Type: 
  Country: None (occurrence: None)
  Receive Date: 20060216
  Receipt Date: 20051213
  Transmission Date: 20060701
  Serious: Yes (Hospitalization)
  Sender: FDA-Public Use
  Company Number: PHBS2005JP18409

PATIENT
  Age: 11 Year
  Sex: Male

DRUGS (1)
  1. VOLTAREN [Suspect]
     Route: 054
     Dates: start: 20050101, end: 20050101

REACTIONS (4)
  - DISSEMINATED INTRAVASCULAR COAGULATION [None]
  - INTERSTITIAL LUNG DISEASE [None]
  - PANCYTOPENIA [None]
  - PLATELET COUNT DECREASED [None]
